FAERS Safety Report 7023495-6 (Version None)
Quarter: 2010Q3

REPORT INFORMATION
  Report Type: 
  Country: None (occurrence: None)
  Receive Date: 20100929
  Receipt Date: 20100929
  Transmission Date: 20110219
  Serious: Yes (Death)
  Sender: FDA-Public Use
  Company Number: None

PATIENT
  Age: 26 Year
  Sex: Male
  Weight: 72.5755 kg

DRUGS (2)
  1. SUBOXONE [Suspect]
     Indication: DEPENDENCE
     Dosage: 1 TABLET DAILY SL
     Route: 060
     Dates: start: 20080301, end: 20100629
  2. SUBUTEX [Suspect]
     Dosage: 1 TABLET DAILY SL
     Route: 060

REACTIONS (3)
  - COMPLETED SUICIDE [None]
  - PARANOIA [None]
  - THERAPY CESSATION [None]
